FAERS Safety Report 22643845 (Version 2)
Quarter: 2024Q1

REPORT INFORMATION
  Report Type: Report from Study
  Country: IT (occurrence: IT)
  Receive Date: 20230627
  Receipt Date: 20240108
  Transmission Date: 20240409
  Serious: Yes (Other)
  Sender: FDA-Public Use
  Company Number: IT-ViiV Healthcare Limited-IT2023GSK081418

PATIENT

DRUGS (3)
  1. TENOFOVIR DISOPROXIL [Suspect]
     Active Substance: TENOFOVIR DISOPROXIL
     Indication: HIV infection
     Dosage: UNK
     Route: 065
  2. DOLUTEGRAVIR [Suspect]
     Active Substance: DOLUTEGRAVIR
     Indication: HIV infection
     Dosage: UNK
     Route: 065
  3. LAMIVUDINE [Suspect]
     Active Substance: LAMIVUDINE
     Indication: HIV infection
     Dosage: UNK
     Route: 065

REACTIONS (6)
  - Pathogen resistance [Unknown]
  - Viraemia [Unknown]
  - Treatment failure [Unknown]
  - Drug resistance [Unknown]
  - Viral mutation identified [Unknown]
  - Virologic failure [Unknown]
